FAERS Safety Report 14268234 (Version 1)
Quarter: 2017Q4

REPORT INFORMATION
  Report Type: Not Available
  Country: US (occurrence: US)
  Receive Date: 20171211
  Receipt Date: 20171211
  Transmission Date: 20180321
  Serious: Yes (Other)
  Sender: FDA-Public Use
  Company Number: US-ANIPHARMA-2017-US-011733

PATIENT
  Age: 64 Year
  Sex: Male

DRUGS (7)
  1. AMPYRA [Concomitant]
     Active Substance: DALFAMPRIDINE
     Dosage: 10 MG, BID
     Route: 048
  2. LOSARTAN POTTASIUM [Concomitant]
     Route: 065
  3. MECLIZINE (NON-SPECIFIC) [Concomitant]
     Active Substance: MECLIZINE HYDROCHLORIDE
     Route: 065
  4. TECFIDERA CAPSULE [Concomitant]
     Dosage: 240 MG, BID
     Route: 048
  5. ZALEPLON. [Concomitant]
     Active Substance: ZALEPLON
     Route: 065
  6. HEPARIN [Suspect]
     Active Substance: HEPARIN SODIUM
     Route: 065
     Dates: start: 201708
  7. VANCOMYCIN HYDROCHLORIDE (NON-SPECIFIC) [Suspect]
     Active Substance: VANCOMYCIN HYDROCHLORIDE
     Route: 065
     Dates: start: 201708

REACTIONS (3)
  - Pain in extremity [Recovered/Resolved]
  - Back pain [Recovered/Resolved]
  - Clostridium difficile infection [Unknown]

NARRATIVE: CASE EVENT DATE: 20170831
